FAERS Safety Report 20959846 (Version 1)
Quarter: 2022Q2

REPORT INFORMATION
  Report Type: Spontaneous
  Country: US (occurrence: US)
  Receive Date: 20220614
  Receipt Date: 20220614
  Transmission Date: 20220721
  Serious: Yes (Other)
  Sender: FDA-Public Use
  Company Number: US-BAXTER-2022BAX009318

PATIENT

DRUGS (2)
  1. STERILE WATER [Suspect]
     Active Substance: WATER
     Dosage: 3000 MILLILITERS (ML) BAG
     Route: 065
     Dates: start: 20220405, end: 20220405
  2. SODIUM CHLORIDE [Suspect]
     Active Substance: SODIUM CHLORIDE
     Dosage: 3000 MILLILITERS (ML) BAG
     Route: 065
     Dates: start: 20220405, end: 20220405

REACTIONS (3)
  - Blood loss anaemia [Recovered/Resolved]
  - Product label confusion [Unknown]
  - Product selection error [Unknown]

NARRATIVE: CASE EVENT DATE: 20220405
